FAERS Safety Report 25202047 (Version 3)
Quarter: 2025Q2

REPORT INFORMATION
  Report Type: Spontaneous
  Country: US (occurrence: US)
  Receive Date: 20250416
  Receipt Date: 20250501
  Transmission Date: 20250717
  Serious: Yes (Other)
  Sender: RANBAXY
  Company Number: US-SUN PHARMACEUTICAL INDUSTRIES LTD-2025R1-502716

PATIENT
  Sex: Male

DRUGS (6)
  1. YONSA [Suspect]
     Active Substance: ABIRATERONE ACETATE
     Indication: Prostate cancer
     Route: 065
     Dates: start: 20250401
  2. OMEGA 3 [Suspect]
     Active Substance: CAPSAICIN
     Indication: Blood cholesterol increased
     Route: 065
  3. OMEGA 3 [Suspect]
     Active Substance: CAPSAICIN
     Route: 065
  4. ALLEGRA [Concomitant]
     Active Substance: FEXOFENADINE HYDROCHLORIDE
     Indication: Product used for unknown indication
     Route: 065
  5. OCUVITE [Concomitant]
     Active Substance: VITAMINS
     Indication: Product used for unknown indication
     Route: 065
  6. Omega 3 Gummies [Concomitant]
     Indication: Blood cholesterol increased
     Route: 065

REACTIONS (5)
  - Choking [Unknown]
  - Product size issue [Unknown]
  - Product use complaint [Unknown]
  - Product prescribing issue [Unknown]
  - Near death experience [Unknown]
